FAERS Safety Report 18266882 (Version 1)
Quarter: 2020Q3

REPORT INFORMATION
  Report Type: Report from Study
  Country: GB (occurrence: GB)
  Receive Date: 20200915
  Receipt Date: 20200915
  Transmission Date: 20201103
  Serious: Yes (Death, Hospitalization)
  Sender: FDA-Public Use
  Company Number: GB-BAYER-2020-192653

PATIENT
  Age: 73 Year
  Sex: Male
  Weight: 76 kg

DRUGS (6)
  1. WARFARIN [Concomitant]
     Active Substance: WARFARIN
     Indication: ANTICOAGULANT THERAPY
     Dosage: UNK
     Route: 065
  2. TRASYLOL [Suspect]
     Active Substance: APROTININ
     Indication: HEART VALVE REPLACEMENT
     Dosage: 600 MILILITRE TOTAL LOADING DOSE 2 MILLION KIU PUMP PRIMING DOSE 2 MILLION KIU TOTAL CONTINOUS INFUS
     Route: 042
     Dates: start: 20200224, end: 20200224
  3. HEPARIN [Concomitant]
     Active Substance: HEPARIN SODIUM
     Indication: ANTICOAGULANT THERAPY
     Dosage: 48 KILO INTERNATIONAL UNIT TTAL DURING SURGERY
     Route: 065
     Dates: start: 20200224, end: 20200224
  4. ASPIRIN [ACETYLSALICYLIC ACID] [Concomitant]
     Active Substance: ASPIRIN
     Indication: ANTIPLATELET THERAPY
     Dosage: UNK
     Route: 065
  5. FRESH FROZEN PLASMA [Concomitant]
     Active Substance: HUMAN PLASMA
     Indication: TRANSFUSION
     Dosage: 869 MILILITRE INTRA AND POST OPERATIVELY(UPTO 48 HOURS)
     Route: 065
     Dates: start: 20200224
  6. RED BLOOD CELLS [Concomitant]
     Active Substance: HUMAN RED BLOOD CELL
     Indication: TRANSFUSION
     Dosage: 900 MILILITRE INTRA AND POST OPERATIVELY
     Route: 065
     Dates: start: 20200224

REACTIONS (3)
  - Renal impairment [Recovered/Resolved]
  - Product use in unapproved indication [Unknown]
  - Off label use [Unknown]

NARRATIVE: CASE EVENT DATE: 20200224
